FAERS Safety Report 10983224 (Version 1)
Quarter: 2015Q2

REPORT INFORMATION
  Report Type: Spontaneous
  Country: US (occurrence: None)
  Receive Date: 20150402
  Receipt Date: 20150402
  Transmission Date: 20150821
  Serious: Yes (Hospitalization)
  Sender: FDA-Public Use
  Company Number: None

PATIENT
  Age: 80 Year
  Sex: Female
  Weight: 87 kg

DRUGS (8)
  1. IBRUTINIB [Suspect]
     Active Substance: IBRUTINIB
     Indication: CHRONIC LYMPHOCYTIC LEUKAEMIA
     Route: 048
  2. HYDROCHLOROTHIAZIDE (HYDRODIURIL) [Concomitant]
  3. MULTIVITAMIN (HEXAVITAMIN) [Concomitant]
  4. LOSARTAN (COZAAR) [Concomitant]
  5. RIFAMPIN (RIFADIN) [Concomitant]
  6. CARVEDILOL (COREG) [Concomitant]
  7. AMLODIPINE (NORVASC) [Concomitant]
  8. CHOLECALCIFEROL (VITAMIN D3) [Concomitant]

REACTIONS (2)
  - Atrial fibrillation [None]
  - Hypertension [None]
